FAERS Safety Report 6000337-9 (Version None)
Quarter: 2008Q4

REPORT INFORMATION
  Report Type: 
  Country: None (occurrence: None)
  Receive Date: 20081211
  Receipt Date: 20081211
  Transmission Date: 20090506
  Serious: Yes (Other)
  Sender: FDA-Public Use
  Company Number: None

PATIENT
  Sex: Male
  Weight: 38.5557 kg

DRUGS (2)
  1. SINGULAIR [Suspect]
     Indication: ASTHMA
     Dosage: 10 MG EACH NIGHT PO
     Route: 048
     Dates: start: 20080801, end: 20081206
  2. SINGULAIR [Suspect]
     Indication: MULTIPLE ALLERGIES
     Dosage: 10 MG EACH NIGHT PO
     Route: 048
     Dates: start: 20080801, end: 20081206

REACTIONS (9)
  - ABNORMAL BEHAVIOUR [None]
  - AGGRESSION [None]
  - ANTISOCIAL BEHAVIOUR [None]
  - CRYING [None]
  - INSOMNIA [None]
  - IRRITABILITY [None]
  - SCREAMING [None]
  - SELF-INJURIOUS IDEATION [None]
  - UNEVALUABLE EVENT [None]
